FAERS Safety Report 5189422-1 (Version None)
Quarter: 2006Q4

REPORT INFORMATION
  Report Type: 
  Country: None (occurrence: None)
  Receive Date: 20061215
  Receipt Date: 20061129
  Transmission Date: 20070319
  Serious: No
  Sender: FDA-Public Use
  Company Number: 2006002257

PATIENT
  Sex: Female

DRUGS (1)
  1. TARCEVA [Suspect]
     Indication: NON-SMALL CELL LUNG CANCER
     Dosage: ORAL
     Route: 048

REACTIONS (4)
  - CORNEAL ABSCESS [None]
  - CORNEAL PERFORATION [None]
  - GROWTH OF EYELASHES [None]
  - HAIR GROWTH ABNORMAL [None]
